FAERS Safety Report 7977817-X (Version None)
Quarter: 2011Q4

REPORT INFORMATION
  Report Type: 
  Country: None (occurrence: None)
  Receive Date: 20111214
  Receipt Date: 20111130
  Transmission Date: 20120403
  Serious: No
  Sender: FDA-Public Use
  Company Number: US-AMGEN-USASP2011057592

PATIENT
  Age: 62 Year
  Sex: Male
  Weight: 188 kg

DRUGS (2)
  1. CIMZIA [Concomitant]
     Dosage: 200 UNK, Q2WK
     Route: 058
     Dates: start: 20110331, end: 20111111
  2. ENBREL [Suspect]
     Indication: RHEUMATOID ARTHRITIS
     Dosage: 25 MG, BID
     Dates: start: 19990601, end: 20110331

REACTIONS (2)
  - THERAPEUTIC RESPONSE DECREASED [None]
  - RHEUMATOID ARTHRITIS [None]
